FAERS Safety Report 5403137-3 (Version None)
Quarter: 2007Q3

REPORT INFORMATION
  Report Type: 
  Country: None (occurrence: None)
  Receive Date: 20070801
  Receipt Date: 20070724
  Transmission Date: 20080115
  Serious: Yes (Death)
  Sender: FDA-Public Use
  Company Number: MW-BOEHRINGER INGELHEIM PHARMACEUTICALS, INC.-2007-DE-04346GD

PATIENT

DRUGS (6)
  1. TRIOMUNE [Suspect]
     Indication: HIV INFECTION
     Route: 048
  2. RIFAMPICIN [Suspect]
     Indication: PULMONARY TUBERCULOSIS
  3. ISONIAZID [Suspect]
     Indication: PULMONARY TUBERCULOSIS
  4. PYRAZINAMIDE [Suspect]
     Indication: PULMONARY TUBERCULOSIS
  5. ETHAMBUTOL HYDROCHLORIDE [Suspect]
     Indication: PULMONARY TUBERCULOSIS
  6. COTRIM [Concomitant]
     Indication: PROPHYLAXIS

REACTIONS (2)
  - CHOLERA [None]
  - DIARRHOEA [None]
